FAERS Safety Report 8012260-9 (Version None)
Quarter: 2011Q4

REPORT INFORMATION
  Report Type: 
  Country: None (occurrence: None)
  Receive Date: 20111228
  Receipt Date: 20111227
  Transmission Date: 20120403
  Serious: Yes (Other)
  Sender: FDA-Public Use
  Company Number: US-CEPHALON-2011004320

PATIENT
  Sex: Female
  Weight: 64 kg

DRUGS (2)
  1. MULTI-VITAMINS [Concomitant]
  2. PROVIGIL [Suspect]
     Indication: NARCOLEPSY
     Route: 048
     Dates: start: 19980101

REACTIONS (2)
  - RETAINED PLACENTA OR MEMBRANES [None]
  - MATERNAL EXPOSURE DURING PREGNANCY [None]
